FAERS Safety Report 10740376 (Version 2)
Quarter: 2015Q2

REPORT INFORMATION
  Report Type: Spontaneous
  Country: US (occurrence: US)
  Receive Date: 20150127
  Receipt Date: 20150420
  Transmission Date: 20150821
  Serious: No
  Sender: FDA-Public Use
  Company Number: US-BIOGENIDEC-2015BI007820

PATIENT
  Age: 40 Year
  Sex: Female

DRUGS (4)
  1. SAFFRON HUNGER [Concomitant]
  2. NEURONTIN [Concomitant]
     Active Substance: GABAPENTIN
  3. TECFIDERA [Suspect]
     Active Substance: DIMETHYL FUMARATE
     Indication: RELAPSING-REMITTING MULTIPLE SCLEROSIS
     Route: 048
     Dates: start: 20140911
  4. PURE PITUITARY [Concomitant]

REACTIONS (10)
  - Coordination abnormal [Unknown]
  - Abdominal pain upper [Recovered/Resolved]
  - Muscle atrophy [Unknown]
  - Headache [Unknown]
  - Balance disorder [Unknown]
  - Abasia [Unknown]
  - Drug dose omission [Recovered/Resolved]
  - Memory impairment [Unknown]
  - Cognitive disorder [Unknown]
  - Gait disturbance [Unknown]

NARRATIVE: CASE EVENT DATE: 20140911
